FAERS Safety Report 6642394-2 (Version None)
Quarter: 2010Q1

REPORT INFORMATION
  Report Type: 
  Country: None (occurrence: None)
  Receive Date: 20100319
  Receipt Date: 20100119
  Transmission Date: 20100710
  Serious: Yes (Hospitalization, Other)
  Sender: FDA-Public Use
  Company Number: BE-SANOFI-AVENTIS-2009SA009636

PATIENT
  Age: 59 Year
  Sex: Male
  Weight: 120 kg

DRUGS (2)
  1. LEFLUNOMIDE [Suspect]
     Route: 048
     Dates: start: 20091001, end: 20091214
  2. METHOTREXATE [Suspect]
     Route: 048
     Dates: start: 20091001, end: 20091214

REACTIONS (7)
  - ALANINE AMINOTRANSFERASE INCREASED [None]
  - ASPARTATE AMINOTRANSFERASE INCREASED [None]
  - ASTHENIA [None]
  - BONE MARROW FAILURE [None]
  - GINGIVAL BLEEDING [None]
  - HEPATOTOXICITY [None]
  - THROMBOCYTOPENIA [None]
